FAERS Safety Report 26096004 (Version 1)
Quarter: 2025Q4

REPORT INFORMATION
  Report Type: Report from Study
  Country: EU (occurrence: EU)
  Receive Date: 20251127
  Receipt Date: 20251127
  Transmission Date: 20260119
  Serious: Yes (Hospitalization)
  Sender: ROCHE
  Company Number: None

PATIENT
  Sex: Male

DRUGS (3)
  1. MABTHERA [Suspect]
     Active Substance: RITUXIMAB
     Indication: Non-small cell lung cancer
     Route: 065
  2. OPDIVO [Suspect]
     Active Substance: NIVOLUMAB
     Indication: Non-small cell lung cancer
     Route: 065
  3. YERVOY [Suspect]
     Active Substance: IPILIMUMAB
     Indication: Non-small cell lung cancer
     Route: 065

REACTIONS (1)
  - Enteritis [Unknown]
